FAERS Safety Report 22521657 (Version 1)
Quarter: 2023Q2

REPORT INFORMATION
  Report Type: Spontaneous
  Country: US (occurrence: US)
  Receive Date: 20230605
  Receipt Date: 20230605
  Transmission Date: 20230721
  Serious: No
  Sender: FDA-Public Use
  Company Number: US-ABBVIE-5187823

PATIENT
  Sex: Female

DRUGS (1)
  1. HUMIRA [Suspect]
     Active Substance: ADALIMUMAB
     Indication: Hidradenitis
     Dosage: START DATE TEXT: A YEAR AGO
     Route: 058
     Dates: start: 2022

REACTIONS (2)
  - Muscle injury [Unknown]
  - Contusion [Unknown]

NARRATIVE: CASE EVENT DATE: 20230101
